FAERS Safety Report 15449319 (Version 2)
Quarter: 2018Q4

REPORT INFORMATION
  Report Type: Report from Study
  Country: AU (occurrence: AU)
  Receive Date: 20181001
  Receipt Date: 20181031
  Transmission Date: 20190204
  Serious: Yes (Hospitalization, Other)
  Sender: FDA-Public Use
  Company Number: AU-009507513-1809AUS010969

PATIENT
  Age: 26 Year
  Sex: Female

DRUGS (2)
  1. PEMBROLIZUMAB. [Suspect]
     Active Substance: PEMBROLIZUMAB
     Indication: NON-SMALL CELL LUNG CANCER
     Dosage: 200 MICROGRAM, FREQUENCY REPORTED AS 3/52
     Route: 042
     Dates: start: 20180907, end: 20180928
  2. PEMBROLIZUMAB. [Suspect]
     Active Substance: PEMBROLIZUMAB
     Dosage: 200 MICROGRAM,  FREQUENCY REPORTED AS 3/52
     Route: 042
     Dates: start: 20181013

REACTIONS (3)
  - Drug-induced liver injury [Recovering/Resolving]
  - Pneumonitis [Unknown]
  - Respiratory tract infection [Unknown]

NARRATIVE: CASE EVENT DATE: 201809
